APPROVED DRUG PRODUCT: ZIPRASIDONE HYDROCHLORIDE
Active Ingredient: ZIPRASIDONE HYDROCHLORIDE
Strength: EQ 80MG BASE
Dosage Form/Route: CAPSULE;ORAL
Application: A204375 | Product #004 | TE Code: AB
Applicant: MACLEODS PHARMACEUTICALS LTD
Approved: Feb 17, 2017 | RLD: No | RS: No | Type: RX